FAERS Safety Report 15843280 (Version 1)
Quarter: 2018Q4

REPORT INFORMATION
  Report Type: Spontaneous
  Country: US (occurrence: US)
  Receive Date: 20181225
  Receipt Date: 20181225
  Transmission Date: 20190205
  Serious: Yes (Hospitalization)
  Sender: FDA-Public Use
  Company Number: None

PATIENT
  Age: 95 Year
  Sex: Male

DRUGS (1)
  1. CLONIDINE. [Suspect]
     Active Substance: CLONIDINE
     Indication: HYPERTENSION
     Route: 048
     Dates: start: 20181013, end: 20181014

REACTIONS (3)
  - Hypertension [None]
  - Sinus bradycardia [None]
  - Atrioventricular block second degree [None]

NARRATIVE: CASE EVENT DATE: 20181015
